FAERS Safety Report 9408278 (Version 27)
Quarter: 2014Q4

REPORT INFORMATION
  Report Type: Spontaneous
  Country: US (occurrence: US)
  Receive Date: 20130718
  Receipt Date: 20141210
  Transmission Date: 20150529
  Serious: Yes (Hospitalization, Other)
  Sender: FDA-Public Use
  Company Number: US-GLAXOSMITHKLINE-A1020554A

PATIENT
  Age: 46 Year
  Sex: Female
  Weight: 163.5 kg

DRUGS (27)
  1. FLOLAN [Suspect]
     Active Substance: EPOPROSTENOL SODIUM
     Indication: PULMONARY ARTERIAL HYPERTENSION
     Dosage: CONCENTRATION: 45,000 NG/ML, VIAL STRENGTH: 1.5 MG14 NG/KG/MIN20 NG/KG/MIN, CONCENTRATION: 60,0[...]
     Route: 042
     Dates: start: 20061122
  2. LOSARTAN [Concomitant]
     Active Substance: LOSARTAN
  3. FLOLAN [Suspect]
     Active Substance: EPOPROSTENOL SODIUM
     Dates: start: 20061122
  4. FLOLAN [Suspect]
     Active Substance: EPOPROSTENOL SODIUM
     Dosage: UNK
     Dates: start: 20061122
  5. FLOLAN [Suspect]
     Active Substance: EPOPROSTENOL SODIUM
     Dosage: UNK
     Dates: start: 20061122
  6. UNSPECIFIED MEDICATION [Suspect]
     Active Substance: UNSPECIFIED INGREDIENT
     Indication: PRODUCT USED FOR UNKNOWN INDICATION
     Route: 065
  7. LASIX [Concomitant]
     Active Substance: FUROSEMIDE
  8. TADALAFIL [Concomitant]
     Active Substance: TADALAFIL
  9. ALBUTEROL NEBULIZER [Concomitant]
     Active Substance: ALBUTEROL
  10. ADCIRCA [Concomitant]
     Active Substance: TADALAFIL
  11. FLOLAN [Suspect]
     Active Substance: EPOPROSTENOL SODIUM
     Dates: start: 20061122
  12. FLOLAN [Suspect]
     Active Substance: EPOPROSTENOL SODIUM
     Dates: start: 20061122
  13. FLOLAN [Suspect]
     Active Substance: EPOPROSTENOL SODIUM
     Dates: start: 20061122
  14. FLOLAN [Suspect]
     Active Substance: EPOPROSTENOL SODIUM
     Dosage: 25.4 NG/KG/MIN, CONCENTRATION 60,000 NG/ML, VIAL STRENGTH 1.5 MG,CO
     Route: 065
  15. INSULIN 70/30 [Concomitant]
     Active Substance: INSULIN HUMAN
  16. COUMADIN [Concomitant]
     Active Substance: WARFARIN SODIUM
  17. CPAP [Concomitant]
     Active Substance: DEVICE
  18. FLONASE [Concomitant]
     Active Substance: FLUTICASONE PROPIONATE
  19. OXYGEN THERAPY [Concomitant]
     Active Substance: OXYGEN
  20. FLOLAN [Suspect]
     Active Substance: EPOPROSTENOL SODIUM
     Dates: start: 20061122
  21. FLOLAN [Suspect]
     Active Substance: EPOPROSTENOL SODIUM
     Dosage: UNK
     Route: 065
     Dates: start: 20061122
  22. CARVEDILOL. [Concomitant]
     Active Substance: CARVEDILOL
  23. FLOLAN [Suspect]
     Active Substance: EPOPROSTENOL SODIUM
     Dosage: UNK
     Route: 065
     Dates: start: 20061122
  24. FLOLAN [Suspect]
     Active Substance: EPOPROSTENOL SODIUM
     Dates: start: 20061122
  25. FLOLAN [Suspect]
     Active Substance: EPOPROSTENOL SODIUM
     Dates: start: 20061122
  26. FLOLAN [Suspect]
     Active Substance: EPOPROSTENOL SODIUM
     Dates: start: 20061122
  27. ADVAIR HFA [Concomitant]
     Active Substance: FLUTICASONE PROPIONATE\SALMETEROL XINAFOATE

REACTIONS (42)
  - Pneumonia [Unknown]
  - Gastric infection [Not Recovered/Not Resolved]
  - Pain in jaw [Not Recovered/Not Resolved]
  - Oedema [Not Recovered/Not Resolved]
  - Myalgia [Not Recovered/Not Resolved]
  - Sinus disorder [Not Recovered/Not Resolved]
  - Acute kidney injury [Not Recovered/Not Resolved]
  - Weight increased [Not Recovered/Not Resolved]
  - Rash [Not Recovered/Not Resolved]
  - Syncope [Not Recovered/Not Resolved]
  - Urinary tract infection [Unknown]
  - Decreased appetite [Not Recovered/Not Resolved]
  - Dyspnoea [Not Recovered/Not Resolved]
  - Dyspnoea exertional [Not Recovered/Not Resolved]
  - Muscle spasms [Not Recovered/Not Resolved]
  - Cystitis [Unknown]
  - Device related infection [Unknown]
  - Hospitalisation [Not Recovered/Not Resolved]
  - Pleural effusion [Unknown]
  - Streptococcal infection [Not Recovered/Not Resolved]
  - Abdominal pain upper [Not Recovered/Not Resolved]
  - Viral infection [Not Recovered/Not Resolved]
  - Weight decreased [Not Recovered/Not Resolved]
  - Productive cough [Not Recovered/Not Resolved]
  - Fatigue [Not Recovered/Not Resolved]
  - Pain [Not Recovered/Not Resolved]
  - Central venous catheterisation [Unknown]
  - Cardiac failure congestive [Not Recovered/Not Resolved]
  - Chest pain [Unknown]
  - Nausea [Not Recovered/Not Resolved]
  - Diarrhoea [Not Recovered/Not Resolved]
  - Vomiting [Not Recovered/Not Resolved]
  - Nasal congestion [Not Recovered/Not Resolved]
  - Feeling abnormal [Not Recovered/Not Resolved]
  - Central venous catheter removal [Unknown]
  - Cardiac flutter [Not Recovered/Not Resolved]
  - Hypotension [Not Recovered/Not Resolved]
  - Hypoglycaemia [Not Recovered/Not Resolved]
  - Gastric disorder [Not Recovered/Not Resolved]
  - Erythema [Not Recovered/Not Resolved]
  - Blister [Not Recovered/Not Resolved]
  - Abdominal pain [Not Recovered/Not Resolved]

NARRATIVE: CASE EVENT DATE: 20130327
